FAERS Safety Report 17068891 (Version 1)
Quarter: 2019Q4

REPORT INFORMATION
  Report Type: Spontaneous
  Country: DE (occurrence: DE)
  Receive Date: 20191124
  Receipt Date: 20191124
  Transmission Date: 20200122
  Serious: Yes (Disabling)
  Sender: FDA-Public Use
  Company Number: NVSC2019DE044214

PATIENT
  Age: 36 Year
  Sex: Female
  Weight: 55 kg

DRUGS (1)
  1. GILENYA [Suspect]
     Active Substance: FINGOLIMOD HYDROCHLORIDE
     Indication: MULTIPLE SCLEROSIS
     Dosage: UNK
     Route: 048
     Dates: start: 201212

REACTIONS (2)
  - Salivary gland cancer [Unknown]
  - Mucoepidermoid carcinoma [Unknown]

NARRATIVE: CASE EVENT DATE: 201905
